FAERS Safety Report 6438309-2 (Version None)
Quarter: 2009Q4

REPORT INFORMATION
  Report Type: 
  Country: None (occurrence: None)
  Receive Date: 20091112
  Receipt Date: 20091112
  Transmission Date: 20100525
  Serious: Yes (Hospitalization)
  Sender: FDA-Public Use
  Company Number: US-ROXANE LABORATORIES, INC.-2009-RO-01163RO

PATIENT
  Sex: Male

DRUGS (13)
  1. PREDNISONE [Suspect]
     Indication: LIVER TRANSPLANT
  2. TACROLIMUS [Suspect]
     Indication: LIVER TRANSPLANT
     Dosage: 6 MG
     Route: 048
     Dates: start: 20090513
  3. ASPIRIN [Concomitant]
  4. TENOFOVIR [Concomitant]
  5. NORVASC [Concomitant]
  6. FLOMAX [Concomitant]
  7. EFFEXOR [Concomitant]
  8. LIPITOR [Concomitant]
  9. BACTRIM [Concomitant]
  10. MULTI-VITAMIN [Concomitant]
  11. PROTONIX [Concomitant]
  12. URSODIOL [Concomitant]
  13. COLACE [Concomitant]

REACTIONS (1)
  - PYREXIA [None]
